FAERS Safety Report 8954805 (Version 1)
Quarter: 2012Q4

REPORT INFORMATION
  Report Type: 
  Country: CA (occurrence: CA)
  Receive Date: 20121207
  Receipt Date: 20121207
  Transmission Date: 20130627
  Serious: Yes (Life-Threatening, Hospitalization)
  Sender: FDA-Public Use
  Company Number: CA-B.I. PHARMACEUTICALS,INC./RIDGEFIELD-2012-CN-02474CN

PATIENT
  Age: 61 Year
  Sex: Male
  Weight: 97 kg

DRUGS (5)
  1. PRADAX [Suspect]
     Dosage: 300 mg
     Route: 048
  2. BISOPROLOL [Concomitant]
  3. CIPRALEX [Concomitant]
  4. CRESTOR [Concomitant]
  5. GLUMETZA [Concomitant]

REACTIONS (3)
  - Respiratory arrest [Recovered/Resolved]
  - Loss of consciousness [Recovered/Resolved]
  - Bedridden [Recovered/Resolved]
